FAERS Safety Report 6840485-4 (Version None)
Quarter: 2010Q3

REPORT INFORMATION
  Report Type: 
  Country: None (occurrence: None)
  Receive Date: 20100714
  Receipt Date: 20100707
  Transmission Date: 20110219
  Serious: Yes (Hospitalization)
  Sender: FDA-Public Use
  Company Number: A0851036A

PATIENT
  Age: 50 Year
  Sex: Male
  Weight: 95 kg

DRUGS (3)
  1. LAMICTAL [Suspect]
     Indication: DEPRESSION
     Route: 065
     Dates: start: 20100101
  2. LEXAPRO [Concomitant]
     Dosage: 20MG PER DAY
     Route: 048
  3. XANAX [Concomitant]

REACTIONS (8)
  - CHEILITIS [None]
  - DIZZINESS [None]
  - HEADACHE [None]
  - MALAISE [None]
  - PAIN [None]
  - PYREXIA [None]
  - RASH [None]
  - TONGUE ERUPTION [None]
